FAERS Safety Report 5287006-8 (Version None)
Quarter: 2007Q2

REPORT INFORMATION
  Report Type: 
  Country: None (occurrence: None)
  Receive Date: 20070404
  Receipt Date: 20070326
  Transmission Date: 20071010
  Serious: Yes (Hospitalization, Other)
  Sender: FDA-Public Use
  Company Number: JP-PFIZER INC-2007010033

PATIENT
  Sex: Male
  Weight: 49 kg

DRUGS (5)
  1. LIPITOR [Suspect]
     Indication: HYPERLIPIDAEMIA
     Route: 048
     Dates: start: 20031115, end: 20061215
  2. LIPITOR [Suspect]
     Indication: HYPERCHOLESTEROLAEMIA
  3. VALSARTAN [Suspect]
     Route: 048
     Dates: start: 20030101, end: 20061215
  4. AMLODIN [Suspect]
     Indication: HYPERTENSION
     Route: 048
     Dates: start: 20040917, end: 20061215
  5. METHAPHYLLIN [Suspect]
     Indication: GASTRITIS
     Route: 048
     Dates: start: 19980207, end: 20061215

REACTIONS (16)
  - DEPRESSED LEVEL OF CONSCIOUSNESS [None]
  - DERMATITIS CONTACT [None]
  - DIABETES MELLITUS NON-INSULIN-DEPENDENT [None]
  - DIABETIC HYPEROSMOLAR COMA [None]
  - DIABETIC NEPHROPATHY [None]
  - GAIT DISTURBANCE [None]
  - GAMMA-GLUTAMYLTRANSFERASE ABNORMAL [None]
  - HYPOGLYCAEMIA [None]
  - METABOLIC ACIDOSIS [None]
  - NEPHROPATHY [None]
  - NEUROGENIC BLADDER [None]
  - NEUROSIS [None]
  - PENILE ULCERATION [None]
  - RENAL FAILURE ACUTE [None]
  - RHABDOMYOLYSIS [None]
  - SCROTAL ULCER [None]
